FAERS Safety Report 8555332-2 (Version None)
Quarter: 2012Q3

REPORT INFORMATION
  Report Type: 
  Country: None (occurrence: None)
  Receive Date: 20120731
  Receipt Date: 20110823
  Transmission Date: 20120928
  Serious: No
  Sender: FDA-Public Use
  Company Number: US-ASTRAZENECA-2011SE33144

PATIENT
  Age: 34 Year
  Sex: Female
  Weight: 60.8 kg

DRUGS (2)
  1. SEROQUEL [Suspect]
     Indication: BIPOLAR DISORDER
     Route: 048
     Dates: start: 20080101
  2. ZOMIG [Suspect]
     Route: 048

REACTIONS (6)
  - THINKING ABNORMAL [None]
  - DRUG TOLERANCE [None]
  - DRUG EFFECT DECREASED [None]
  - DRUG DOSE OMISSION [None]
  - INSOMNIA [None]
  - STRESS [None]
